FAERS Safety Report 6248830-8 (Version None)
Quarter: 2009Q2

REPORT INFORMATION
  Report Type: 
  Country: None (occurrence: None)
  Receive Date: 20090629
  Receipt Date: 20090617
  Transmission Date: 20091009
  Serious: Yes (Life-Threatening, Hospitalization)
  Sender: FDA-Public Use
  Company Number: FR-ELI_LILLY_AND_COMPANY-FR200906003832

PATIENT
  Sex: Male
  Weight: 70 kg

DRUGS (17)
  1. ZYPREXA [Suspect]
     Indication: SCHIZOPHRENIA
     Dosage: 10 MG, DAILY (1/D)
     Dates: end: 20090501
  2. ZYPREXA [Suspect]
     Dosage: 10 MG, DAILY (1/D)
     Dates: start: 20090518, end: 20090519
  3. VANCOMYCIN [Concomitant]
     Dates: start: 20090515
  4. NEXIUM [Concomitant]
     Dates: start: 20090515
  5. VECTARION [Concomitant]
     Dates: start: 20090515
  6. HEPARIN [Concomitant]
     Dates: start: 20090515
  7. LASIX [Concomitant]
     Dates: start: 20090515
  8. DIPRIVAN [Concomitant]
     Dates: start: 20090515, end: 20090519
  9. SUFENTA PRESERVATIVE FREE [Concomitant]
     Dates: start: 20090515, end: 20090519
  10. DOBUTAMIN [Concomitant]
     Dates: start: 20090515, end: 20090519
  11. HYPNOVEL [Concomitant]
     Dates: start: 20090517, end: 20090519
  12. NIMBEX [Concomitant]
     Dates: start: 20090515, end: 20090516
  13. NORADRENALINE [Concomitant]
     Dates: start: 20090515, end: 20090518
  14. ADRENALINE [Concomitant]
     Dates: start: 20090515, end: 20090518
  15. HYDROCORTISONE [Concomitant]
     Dates: start: 20090515, end: 20090518
  16. CORDARONE [Concomitant]
     Dosage: 150 MG, UNK
     Route: 042
     Dates: start: 20090515, end: 20090519
  17. CRESTOR [Concomitant]
     Dates: start: 20090516

REACTIONS (5)
  - ACUTE CORONARY SYNDROME [None]
  - ACUTE PULMONARY OEDEMA [None]
  - CARDIAC ARREST [None]
  - HYPOKALAEMIA [None]
  - VENTRICULAR TACHYCARDIA [None]
